FAERS Safety Report 17200804 (Version 2)
Quarter: 2020Q1

REPORT INFORMATION
  Report Type: Spontaneous
  Country: BE (occurrence: BE)
  Receive Date: 20191226
  Receipt Date: 20200210
  Transmission Date: 20200409
  Serious: Yes (Other)
  Sender: FDA-Public Use
  Company Number: BE-GLAXOSMITHKLINE-BE2019230949

PATIENT
  Age: 27 Year
  Sex: Female

DRUGS (5)
  1. ISO-BETADINE [Concomitant]
     Active Substance: POVIDONE-IODINE
     Indication: TOOTHACHE
     Dosage: 3 DF, QD
     Route: 050
     Dates: start: 20191030
  2. DAFALGAN FORTE [Concomitant]
     Indication: TOOTHACHE
     Dosage: 3 G, QD
     Route: 048
     Dates: start: 20191107
  3. IBUPROFEN. [Concomitant]
     Active Substance: IBUPROFEN
     Indication: TOOTHACHE
     Dosage: 1200 MG, QD
     Route: 048
     Dates: start: 20191031
  4. LAMICTAL [Suspect]
     Active Substance: LAMOTRIGINE
     Indication: PRODUCT USED FOR UNKNOWN INDICATION
     Dosage: 200 MG, QD
     Route: 048
     Dates: start: 20190709, end: 20191113
  5. AMOXICILLINE EG [Concomitant]
     Active Substance: AMOXICILLIN
     Indication: TOOTHACHE
     Dosage: 1500 MG, QD
     Route: 048
     Dates: start: 20191029

REACTIONS (3)
  - Dyskinesia [Unknown]
  - Sexually inappropriate behaviour [Unknown]
  - Anxiety [Unknown]

NARRATIVE: CASE EVENT DATE: 20191113
